FAERS Safety Report 5199039-0 (Version None)
Quarter: 2007Q1

REPORT INFORMATION
  Report Type: 
  Country: None (occurrence: None)
  Receive Date: 20070104
  Receipt Date: 20061225
  Transmission Date: 20070707
  Serious: Yes (Hospitalization, Other)
  Sender: FDA-Public Use
  Company Number: JP-BRISTOL-MYERS SQUIBB COMPANY-13604137

PATIENT
  Age: 44 Year
  Sex: Female

DRUGS (8)
  1. ARIPIPRAZOLE [Suspect]
     Indication: SCHIZOPHRENIA
     Dosage: 30MG WAS DECREASED TO 18MG ON 22-OCT-2006 6MG/ 30MG/ 24MG
     Route: 048
     Dates: start: 20060627
  2. VALPROATE SODIUM [Suspect]
     Indication: AFFECTIVE DISORDER
     Route: 048
     Dates: start: 20040401, end: 20061022
  3. CARBAMAZEPINE [Suspect]
     Indication: AFFECTIVE DISORDER
     Dosage: 800MG 22-SEP-2006 TO UNKNOWN; 1200 MG UNKNOWN TO 22-OCT-2006/400MG 1WK/600MG 1WK/800MG 2WK/1200MG 3D
     Route: 048
     Dates: start: 20060922, end: 20061022
  4. CHLORPROMAZINE HIBENZATE [Concomitant]
     Indication: SCHIZOPHRENIA
     Route: 048
     Dates: start: 20031008
  5. ZOPICLONE [Concomitant]
     Indication: INSOMNIA
     Route: 048
     Dates: start: 20031008
  6. BROTIZOLAM [Concomitant]
     Indication: INSOMNIA
     Route: 048
     Dates: start: 20031008
  7. HALOPERIDOL [Concomitant]
     Route: 048
     Dates: start: 20060803
  8. QUETIAPINE FUMARATE [Concomitant]
     Dosage: REDUCED TO 450MG
     Route: 048
     Dates: start: 20060803

REACTIONS (1)
  - HEPATITIS FULMINANT [None]
